FAERS Safety Report 20734789 (Version 2)
Quarter: 2022Q3

REPORT INFORMATION
  Report Type: Spontaneous
  Country: US (occurrence: US)
  Receive Date: 20220421
  Receipt Date: 20220701
  Transmission Date: 20221027
  Serious: Yes (Hospitalization)
  Sender: FDA-Public Use
  Company Number: US-NOVARTISPH-NVSC2022US091727

PATIENT
  Age: 5 Month
  Sex: Female

DRUGS (1)
  1. ZOLGENSMA [Suspect]
     Active Substance: ONASEMNOGENE ABEPARVOVEC-XIOI
     Indication: Spinal muscular atrophy
     Dosage: 1.1 X 10^14 VECTOR GENOMES/KG, ONCE/SINGLE
     Route: 042
     Dates: start: 20220222

REACTIONS (4)
  - Adenovirus infection [Unknown]
  - Cyanosis [Unknown]
  - Selective eating disorder [Unknown]
  - Respiratory distress [Unknown]

NARRATIVE: CASE EVENT DATE: 20220301
